FAERS Safety Report 4864798-0 (Version None)
Quarter: 2005Q4

REPORT INFORMATION
  Report Type: 
  Country: None (occurrence: None)
  Receive Date: 20051222
  Receipt Date: 20051005
  Transmission Date: 20060501
  Serious: Yes (Death, Hospitalization)
  Sender: FDA-Public Use
  Company Number: US-MERCK-0510USA04649

PATIENT
  Age: 83 Year
  Sex: Male
  Weight: 82 kg

DRUGS (7)
  1. VIOXX [Suspect]
     Indication: ARTHRITIS
     Route: 048
     Dates: start: 20030301, end: 20030401
  2. METOPROLOL [Concomitant]
     Route: 065
  3. LASIX [Concomitant]
     Route: 065
  4. SYNTHROID [Concomitant]
     Route: 065
  5. [THERAPY UNSPECIFIED] [Concomitant]
     Route: 065
  6. TOBRADEX [Concomitant]
     Route: 065
  7. NITRO-DUR [Concomitant]
     Route: 065

REACTIONS (8)
  - BRADYCARDIA [None]
  - CEREBROVASCULAR ACCIDENT [None]
  - CHEST PAIN [None]
  - CONGESTIVE CARDIOMYOPATHY [None]
  - DIZZINESS [None]
  - EYE DISORDER [None]
  - RENAL FAILURE CHRONIC [None]
  - SICK SINUS SYNDROME [None]
